FAERS Safety Report 7843854-9 (Version None)
Quarter: 2011Q4

REPORT INFORMATION
  Report Type: 
  Country: None (occurrence: None)
  Receive Date: 20111025
  Receipt Date: 20111017
  Transmission Date: 20120403
  Serious: Yes (Hospitalization, Other)
  Sender: FDA-Public Use
  Company Number: US-CELGENEUS-163-21880-11083477

PATIENT
  Age: 66 Year
  Sex: Female

DRUGS (24)
  1. DULOXETIME HYDROCHLORIDE [Concomitant]
     Route: 065
  2. LISINOPRIL [Concomitant]
     Route: 065
  3. AMBIEN [Concomitant]
     Route: 065
  4. PEPCID [Concomitant]
     Route: 065
  5. REVLIMID [Suspect]
     Dosage: 10 MILLIGRAM
     Route: 048
     Dates: start: 20101206, end: 20101221
  6. REVLIMID [Suspect]
     Dosage: 5 MILLIGRAM
     Route: 048
     Dates: start: 20110101, end: 20110901
  7. HYDROCODONE BITARTRATE AND ACETAMINOPHEN [Concomitant]
     Route: 065
  8. CLONAZEPAM [Concomitant]
     Route: 065
  9. FUROSEMIDE [Concomitant]
     Route: 065
  10. NORTRIPTYLINE HCL [Concomitant]
     Route: 065
  11. GABAPENTIN [Concomitant]
     Route: 065
  12. RALOXIFENE HCL [Concomitant]
     Route: 065
  13. FLUTICASONE PROPIONATE [Concomitant]
     Route: 065
  14. ZESTRIL [Concomitant]
     Route: 065
  15. CARVEDILOL [Concomitant]
     Route: 065
  16. COREG [Concomitant]
     Route: 065
  17. ROPINIROLE [Concomitant]
     Route: 065
  18. VITAMIN B-12 [Concomitant]
     Route: 065
  19. CYMBALTA [Concomitant]
     Route: 065
  20. EVISTA [Concomitant]
     Route: 065
  21. REVLIMID [Suspect]
     Dosage: 5 MILLIGRAM
     Route: 048
     Dates: start: 20111017
  22. FAMOTIDINE [Concomitant]
     Route: 065
  23. NEURONTIN [Concomitant]
     Route: 065
  24. VICODIN [Concomitant]
     Route: 065

REACTIONS (7)
  - ATRIOVENTRICULAR BLOCK SECOND DEGREE [None]
  - VENTRICULAR EXTRASYSTOLES [None]
  - PRESYNCOPE [None]
  - ATRIOVENTRICULAR BLOCK FIRST DEGREE [None]
  - PANCYTOPENIA [None]
  - URINARY TRACT INFECTION [None]
  - THROMBOCYTOPENIA [None]
